FAERS Safety Report 8929025 (Version 1)
Quarter: 2012Q4

REPORT INFORMATION
  Report Type: 
  Country: JP (occurrence: JP)
  Receive Date: 20121127
  Receipt Date: 20121127
  Transmission Date: 20130627
  Serious: Yes (Other)
  Sender: FDA-Public Use
  Company Number: JP-MYLANLABS-2012S1023878

PATIENT
  Age: 73 Year
  Sex: Female

DRUGS (5)
  1. ETANERCEPT [Suspect]
     Indication: RHEUMATOID ARTHRITIS
     Dosage: 25 mg/week
     Dates: start: 201003, end: 201004
  2. ETANERCEPT [Suspect]
     Indication: RHEUMATOID ARTHRITIS
     Route: 058
     Dates: start: 200507, end: 200702
  3. INFLIXIMAB [Suspect]
     Indication: RHEUMATOID ARTHRITIS
     Dosage: 160mg on weeks 2, 6, 14 then every 8 weeks
     Route: 042
     Dates: start: 200310, end: 200505
  4. METHOTREXATE [Suspect]
     Indication: RHEUMATOID ARTHRITIS
     Dosage: 8 mg/week
     Route: 065
     Dates: start: 200310, end: 200703
  5. PREDNISOLONE [Concomitant]
     Indication: INTERSTITIAL LUNG DISEASE
     Dosage: 50 mg/day; dose gradually decreased
     Route: 065

REACTIONS (3)
  - Idiopathic thrombocytopenic purpura [Unknown]
  - Interstitial lung disease [Unknown]
  - Rash [Unknown]
